FAERS Safety Report 7358443-2 (Version None)
Quarter: 2011Q1

REPORT INFORMATION
  Report Type: 
  Country: None (occurrence: None)
  Receive Date: 20110317
  Receipt Date: 20100903
  Transmission Date: 20110831
  Serious: Yes (Hospitalization)
  Sender: FDA-Public Use
  Company Number: JP-ASTRAZENECA-2011SE14238

PATIENT
  Age: 1 Month
  Sex: Male

DRUGS (1)
  1. MEROPENEM [Suspect]
     Indication: MENINGITIS
     Route: 042
     Dates: start: 20100621

REACTIONS (1)
  - HEPATIC FUNCTION ABNORMAL [None]
